FAERS Safety Report 23084631 (Version 4)
Quarter: 2024Q1

REPORT INFORMATION
  Report Type: Report from Study
  Country: US (occurrence: US)
  Receive Date: 20231019
  Receipt Date: 20240327
  Transmission Date: 20240409
  Serious: Yes (Hospitalization, Other)
  Sender: FDA-Public Use
  Company Number: US-002147023-NVSC2022US170245

PATIENT
  Age: 32 Year
  Sex: Female
  Weight: 93.424 kg

DRUGS (18)
  1. TREPROSTINIL [Suspect]
     Active Substance: TREPROSTINIL
     Dosage: 44.5 NG/KG/MIN
     Route: 042
     Dates: start: 20220801
  2. TREPROSTINIL [Suspect]
     Active Substance: TREPROSTINIL
     Dosage: UNK, CONT, 50 NG/KG/MIN
     Route: 042
  3. TREPROSTINIL [Suspect]
     Active Substance: TREPROSTINIL
     Dosage: 11.75 NG/KG/MIN, CONT
     Route: 042
  4. TREPROSTINIL [Suspect]
     Active Substance: TREPROSTINIL
     Dosage: 15.5 NG/KG/MIN, CONT
     Route: 042
  5. TREPROSTINIL [Suspect]
     Active Substance: TREPROSTINIL
     Indication: Pulmonary arterial hypertension
     Dosage: 2 NG/KG/MIN, CONT
     Route: 042
     Dates: start: 20220801
  6. TREPROSTINIL [Suspect]
     Active Substance: TREPROSTINIL
     Dosage: 8 NG/KG/MIN, CONT
     Route: 042
  7. TREPROSTINIL [Suspect]
     Active Substance: TREPROSTINIL
     Dosage: 9.25 NG/KG/MIN, CONT
     Route: 042
  8. TREPROSTINIL [Suspect]
     Active Substance: TREPROSTINIL
     Dosage: 19.25 NG/KG/MIN, CONT
     Route: 042
  9. TREPROSTINIL [Suspect]
     Active Substance: TREPROSTINIL
     Dosage: 21.75 NG/KG/MIN, CONT
     Route: 042
  10. TREPROSTINIL [Suspect]
     Active Substance: TREPROSTINIL
     Dosage: 24.25 NG/KG/MIN, CONT
     Route: 042
  11. TREPROSTINIL [Suspect]
     Active Substance: TREPROSTINIL
     Dosage: 28 NG/KG/MIN, CONT
     Route: 042
  12. TREPROSTINIL [Suspect]
     Active Substance: TREPROSTINIL
     Dosage: 34.25 NG/KG/MIN, CONT
     Route: 042
  13. TREPROSTINIL [Suspect]
     Active Substance: TREPROSTINIL
     Dosage: 31.75 NG/KG/MIN, CONT
     Route: 042
  14. TREPROSTINIL [Suspect]
     Active Substance: TREPROSTINIL
     Dosage: 39.25 NG/KG/MIN, CONT
     Route: 042
     Dates: start: 20220801
  15. CEFTRIAXONE [Concomitant]
     Active Substance: CEFTRIAXONE\CEFTRIAXONE SODIUM
     Indication: Product used for unknown indication
     Dosage: UNK
     Route: 065
  16. SILDENAFIL CITRATE [Concomitant]
     Active Substance: SILDENAFIL CITRATE
     Indication: Product used for unknown indication
     Dosage: UNK
     Route: 065
  17. SULFAMETHOXAZOLE [Concomitant]
     Active Substance: SULFAMETHOXAZOLE
     Indication: Product used for unknown indication
     Dosage: UNK
     Route: 065
  18. UPTRAVI [Concomitant]
     Active Substance: SELEXIPAG
     Indication: Product used for unknown indication
     Dosage: UNK
     Route: 065

REACTIONS (29)
  - Catheter site thrombosis [Unknown]
  - Device related infection [Unknown]
  - Syncope [Unknown]
  - Respiratory failure [Unknown]
  - Hospitalisation [Unknown]
  - Haematological infection [Unknown]
  - Cellulitis [Unknown]
  - Thrombosis [Unknown]
  - Vascular access complication [Unknown]
  - Chills [Not Recovered/Not Resolved]
  - Hypoaesthesia oral [Unknown]
  - Tremor [Unknown]
  - Weight increased [Unknown]
  - Weight decreased [Unknown]
  - Paraesthesia [Recovered/Resolved]
  - Flushing [Unknown]
  - Complication associated with device [Unknown]
  - Suture related complication [Unknown]
  - Pain [Unknown]
  - Foreign body [Unknown]
  - Dizziness [Unknown]
  - Chest pain [Unknown]
  - Dyspnoea exertional [Not Recovered/Not Resolved]
  - Oedema peripheral [Unknown]
  - Catheter site irritation [Unknown]
  - Catheter site pruritus [Unknown]
  - Infusion site infection [Unknown]
  - Rash [Unknown]
  - Suture rupture [Unknown]

NARRATIVE: CASE EVENT DATE: 20240318
